FAERS Safety Report 6232359-7 (Version None)
Quarter: 2009Q2

REPORT INFORMATION
  Report Type: 
  Country: None (occurrence: None)
  Receive Date: 20090617
  Receipt Date: 20090609
  Transmission Date: 20091009
  Serious: Yes (Death)
  Sender: FDA-Public Use
  Company Number: JP-JNJFOC-20090303194

PATIENT
  Age: 70 Year
  Sex: Male

DRUGS (10)
  1. CRAVIT [Suspect]
     Indication: PULMONARY TUBERCULOSIS
     Route: 048
  2. ISCOTIN [Suspect]
     Indication: PULMONARY TUBERCULOSIS
     Route: 048
  3. PYRAMIDE [Suspect]
     Indication: PULMONARY TUBERCULOSIS
     Route: 048
  4. RIFAMPICIN [Suspect]
     Indication: PULMONARY TUBERCULOSIS
     Route: 048
  5. BROTIZOLAM [Concomitant]
     Indication: INSOMNIA
     Route: 048
  6. TRANSAMIN [Concomitant]
     Indication: HAEMOPTYSIS
     Route: 048
  7. ADONA [Concomitant]
     Indication: HAEMOPTYSIS
     Route: 048
  8. SIGMART [Concomitant]
     Indication: ANGINA PECTORIS
     Route: 048
  9. SENNOSIDE [Concomitant]
     Route: 065
  10. BENZALIN [Concomitant]
     Indication: INSOMNIA
     Route: 048

REACTIONS (1)
  - HEPATITIS FULMINANT [None]
